FAERS Safety Report 19839194 (Version 1)
Quarter: 2021Q3

REPORT INFORMATION
  Report Type: Spontaneous
  Country: US (occurrence: US)
  Receive Date: 20210915
  Receipt Date: 20210915
  Transmission Date: 20211014
  Serious: Yes (Disabling)
  Sender: FDA-Public Use
  Company Number: None

PATIENT
  Sex: Male

DRUGS (2)
  1. ZICAM (HOMEOPATHICS) [Suspect]
     Active Substance: HOMEOPATHICS
     Indication: NASOPHARYNGITIS
     Dosage: ?          OTHER STRENGTH:1 SWAB PER NOSTRIL;QUANTITY:1 SWAB PER NOSTRIL;OTHER ROUTE:NASAL SWAB?
     Route: 045
     Dates: start: 20000101, end: 20080731
  2. ZICAM (HOMEOPATHICS) [Suspect]
     Active Substance: HOMEOPATHICS
     Indication: NASAL CONGESTION
     Dosage: ?          OTHER STRENGTH:1 SWAB PER NOSTRIL;QUANTITY:1 SWAB PER NOSTRIL;OTHER ROUTE:NASAL SWAB?
     Route: 045
     Dates: start: 20000101, end: 20080731

REACTIONS (1)
  - Anosmia [None]
